FAERS Safety Report 4603256-5 (Version None)
Quarter: 2005Q1

REPORT INFORMATION
  Report Type: 
  Country: None (occurrence: None)
  Receive Date: 20050223
  Receipt Date: 20040513
  Transmission Date: 20050727
  Serious: Yes (Other)
  Sender: FDA-Public Use
  Company Number: PHEH2004US04794

PATIENT
  Age: 72 Year
  Sex: Male
  Weight: 83.9 kg

DRUGS (3)
  1. DIOVAN [Suspect]
     Dosage: 80, ORAL; 160, ORAL
     Route: 048
     Dates: start: 20031001, end: 20040201
  2. DIOVAN [Suspect]
     Dosage: 80, ORAL; 160, ORAL
     Route: 048
     Dates: start: 20040201
  3. GLUCOVANCE [Concomitant]

REACTIONS (3)
  - ANGIONEUROTIC OEDEMA [None]
  - DYSPNOEA [None]
  - SWOLLEN TONGUE [None]
